FAERS Safety Report 4498053-8 (Version None)
Quarter: 2004Q4

REPORT INFORMATION
  Report Type: 
  Country: None (occurrence: None)
  Receive Date: 20041109
  Receipt Date: 20041109
  Transmission Date: 20050328
  Serious: Yes (Hospitalization)
  Sender: FDA-Public Use
  Company Number: None

PATIENT
  Age: 75 Year
  Sex: Male
  Weight: 108 kg

DRUGS (2)
  1. LEVOFLOXACIN [Suspect]
     Indication: INFECTION
     Dosage: 500 MG  Q DAY  ORAL
     Route: 048
     Dates: start: 20040821, end: 20041005
  2. LEVOFLOXACIN [Suspect]
     Indication: INFECTION
     Dosage: 250 MG   Q DAY   INTRAVENOUS
     Route: 042
     Dates: start: 20040812, end: 20040821

REACTIONS (2)
  - CLOSTRIDIAL INFECTION [None]
  - DIARRHOEA [None]
